FAERS Safety Report 5057262-X (Version None)
Quarter: 2006Q3

REPORT INFORMATION
  Report Type: 
  Country: None (occurrence: None)
  Receive Date: 20060721
  Receipt Date: 20050711
  Transmission Date: 20061208
  Serious: No
  Sender: FDA-Public Use
  Company Number: US-GLAXOSMITHKLINE-A0565740A

PATIENT
  Age: 67 Year
  Sex: Male

DRUGS (5)
  1. AVANDIA [Suspect]
     Dosage: 2MG TWICE PER DAY
     Route: 048
     Dates: start: 20050505
  2. GLYBURIDE [Concomitant]
  3. LOTENSIN [Concomitant]
  4. LANTUS [Concomitant]
  5. AVANDAMET [Concomitant]

REACTIONS (1)
  - DRUG INEFFECTIVE [None]
